FAERS Safety Report 18435908 (Version 1)
Quarter: 2020Q4

REPORT INFORMATION
  Report Type: Report from Study
  Country: US (occurrence: US)
  Receive Date: 20201028
  Receipt Date: 20201028
  Transmission Date: 20210114
  Serious: Yes (Death, Life-Threatening, Other)
  Sender: FDA-Public Use
  Company Number: US-BAYER-2020-224886

PATIENT
  Age: 61 Year
  Sex: Male

DRUGS (1)
  1. ACETAMINOPHEN. [Suspect]
     Active Substance: ACETAMINOPHEN

REACTIONS (10)
  - Toxicity to various agents [Fatal]
  - Myocardial infarction [None]
  - Metabolic acidosis [None]
  - Gastrointestinal haemorrhage [None]
  - Hypotension [None]
  - Depressed level of consciousness [None]
  - Anion gap [None]
  - Acute kidney injury [None]
  - Respiratory depression [None]
  - Coma [None]
